FAERS Safety Report 5782761-2 (Version None)
Quarter: 2008Q2

REPORT INFORMATION
  Report Type: 
  Country: None (occurrence: None)
  Receive Date: 20080624
  Receipt Date: 20080324
  Transmission Date: 20081010
  Serious: No
  Sender: FDA-Public Use
  Company Number: US-BAYER-200818462NA

PATIENT
  Age: 55 Year
  Sex: Female
  Weight: 64 kg

DRUGS (4)
  1. CLIMARA [Suspect]
     Indication: DRUG USE FOR UNKNOWN INDICATION
     Route: 062
     Dates: start: 20070701
  2. CLIMARA [Suspect]
     Route: 062
     Dates: end: 20070101
  3. LORTAB [Concomitant]
  4. DARVOCET [Concomitant]

REACTIONS (1)
  - BREAST PAIN [None]
